FAERS Safety Report 21112281 (Version 5)
Quarter: 2024Q1

REPORT INFORMATION
  Report Type: Spontaneous
  Country: US (occurrence: US)
  Receive Date: 20220721
  Receipt Date: 20240124
  Transmission Date: 20240410
  Serious: No
  Sender: FDA-Public Use
  Company Number: US-DSJP-DSU-2022-125157AA

PATIENT
  Sex: Female

DRUGS (2)
  1. TURALIO [Suspect]
     Active Substance: PEXIDARTINIB HYDROCHLORIDE
     Indication: Giant cell tumour of tendon sheath
     Dosage: 200 MG
     Route: 048
     Dates: start: 20210622
  2. TURALIO [Suspect]
     Active Substance: PEXIDARTINIB HYDROCHLORIDE
     Dosage: 200 MG (2 CAPSULES IN THE MORNING AND 2 CAPSULES IN THE EVENING), BID
     Route: 048

REACTIONS (4)
  - Pain [Unknown]
  - Product use issue [Unknown]
  - Therapy cessation [Unknown]
  - Product dose omission issue [Not Recovered/Not Resolved]
